FAERS Safety Report 19221413 (Version 1)
Quarter: 2021Q2

REPORT INFORMATION
  Report Type: Report from Study
  Country: IT (occurrence: IT)
  Receive Date: 20210505
  Receipt Date: 20210505
  Transmission Date: 20210717
  Serious: Yes (Other)
  Sender: FDA-Public Use
  Company Number: IT-PFIZER INC-2021460899

PATIENT
  Age: 69 Year
  Sex: Female

DRUGS (5)
  1. FAMOTIDINE. [Concomitant]
     Active Substance: FAMOTIDINE
     Indication: ANTIALLERGIC THERAPY
  2. TRAZIMERA [Suspect]
     Active Substance: TRASTUZUMAB-QYYP
     Indication: BREAST CANCER
     Dosage: UNK
     Dates: start: 20210301
  3. ABRAXANE [Suspect]
     Active Substance: PACLITAXEL
     Indication: BREAST CANCER
     Dosage: UNK
     Dates: start: 20210126
  4. ONDANSETRON HYDROCHLORIDE. [Concomitant]
     Active Substance: ONDANSETRON HYDROCHLORIDE
     Indication: VOMITING
  5. DEXAMETHASONE. [Concomitant]
     Active Substance: DEXAMETHASONE
     Indication: ANTIINFLAMMATORY THERAPY

REACTIONS (12)
  - Stomatitis [Recovering/Resolving]
  - Pruritus [Recovering/Resolving]
  - Hypergeusia [Recovering/Resolving]
  - Alopecia [Recovering/Resolving]
  - Middle insomnia [Recovering/Resolving]
  - Abdominal distension [Recovering/Resolving]
  - Aphthous ulcer [Recovering/Resolving]
  - Agitation [Recovering/Resolving]
  - Thirst [Recovering/Resolving]
  - Nervousness [Recovering/Resolving]
  - Leukopenia [Recovered/Resolved]
  - Hypersensitivity [Recovered/Resolved]

NARRATIVE: CASE EVENT DATE: 20210301
